FAERS Safety Report 9931350 (Version 2)
Quarter: 2014Q1

REPORT INFORMATION
  Report Type: Spontaneous
  Country: US (occurrence: US)
  Receive Date: 20140228
  Receipt Date: 20140228
  Transmission Date: 20141002
  Serious: Yes (Other)
  Sender: FDA-Public Use
  Company Number: US-RANBAXY-2011US-46614

PATIENT
  Age: 69 Year
  Sex: Male

DRUGS (4)
  1. ATORVASTATIN [Suspect]
     Indication: PRODUCT USED FOR UNKNOWN INDICATION
     Dosage: UNK
     Route: 065
     Dates: start: 1996, end: 2003
  2. SIMVASTATIN [Suspect]
     Indication: LOW DENSITY LIPOPROTEIN
     Dosage: 5 MG; DAILY
     Route: 065
     Dates: start: 200908
  3. SIMVASTATIN [Suspect]
     Indication: HIGH DENSITY LIPOPROTEIN
  4. SIMVASTATIN [Suspect]
     Indication: C-REACTIVE PROTEIN

REACTIONS (2)
  - Neuropathy peripheral [Not Recovered/Not Resolved]
  - Gait disturbance [Unknown]
